FAERS Safety Report 6956986-4 (Version None)
Quarter: 2010Q3

REPORT INFORMATION
  Report Type: 
  Country: None (occurrence: None)
  Receive Date: 20100827
  Receipt Date: 20100827
  Transmission Date: 20110219
  Serious: Yes (Other)
  Sender: FDA-Public Use
  Company Number: None

PATIENT
  Age: 58 Year
  Sex: Male
  Weight: 118.8424 kg

DRUGS (8)
  1. WELCHOL [Suspect]
     Indication: BLOOD TRIGLYCERIDES INCREASED
     Dosage: 312.5 MG - IN TJHREE TABLETS- DAILY PO
     Route: 048
     Dates: start: 20100817, end: 20100823
  2. WELCHOL [Suspect]
     Indication: LOW DENSITY LIPOPROTEIN INCREASED
     Dosage: 312.5 MG - IN TJHREE TABLETS- DAILY PO
     Route: 048
     Dates: start: 20100817, end: 20100823
  3. ATRIPLA [Concomitant]
  4. ADVAIR DISKUS 100/50 [Concomitant]
  5. PROTONIX [Concomitant]
  6. METOPROLOL TARTRATE [Concomitant]
  7. DIOVAN [Concomitant]
  8. AMITRIPTYLINE HYDROCHLORIDE [Concomitant]

REACTIONS (8)
  - ABDOMINAL DISCOMFORT [None]
  - ABDOMINAL PAIN UPPER [None]
  - ASTHENIA [None]
  - CONSTIPATION [None]
  - FATIGUE [None]
  - MYALGIA [None]
  - NAUSEA [None]
  - SOMNOLENCE [None]
